FAERS Safety Report 7819635-9 (Version None)
Quarter: 2011Q4

REPORT INFORMATION
  Report Type: 
  Country: None (occurrence: None)
  Receive Date: 20111018
  Receipt Date: 20111014
  Transmission Date: 20120403
  Serious: No
  Sender: FDA-Public Use
  Company Number: DE-SANOFI-AVENTIS-2011SA067454

PATIENT
  Age: 75 Year
  Sex: Female

DRUGS (2)
  1. MULTAQ [Suspect]
     Route: 048
  2. MARCUMAR [Concomitant]
     Route: 065

REACTIONS (1)
  - BLOOD CREATININE INCREASED [None]
